FAERS Safety Report 16841117 (Version 1)
Quarter: 2019Q3

REPORT INFORMATION
  Report Type: Spontaneous
  Country: US (occurrence: US)
  Receive Date: 20190923
  Receipt Date: 20190923
  Transmission Date: 20191005
  Serious: Yes (Hospitalization)
  Sender: FDA-Public Use
  Company Number: US-SA-2019SA260198

PATIENT
  Age: 29 Year
  Sex: Male

DRUGS (1)
  1. ADMELOG [Suspect]
     Active Substance: INSULIN LISPRO
     Indication: DIABETES MELLITUS
     Dosage: 4 U, TID
     Route: 065

REACTIONS (4)
  - Malaise [Unknown]
  - Device leakage [Unknown]
  - Hospitalisation [Unknown]
  - Incorrect dose administered by device [Unknown]
